FAERS Safety Report 12888062 (Version 2)
Quarter: 2018Q2

REPORT INFORMATION
  Report Type: Report from Study
  Country: CA (occurrence: CA)
  Receive Date: 20161027
  Receipt Date: 20180425
  Transmission Date: 20180711
  Serious: Yes (Other)
  Sender: FDA-Public Use
  Company Number: CA-ROCHE-1308729

PATIENT
  Age: 62 Year
  Sex: Female
  Weight: 57.2 kg

DRUGS (8)
  1. RITUXAN [Suspect]
     Active Substance: RITUXIMAB
     Indication: RHEUMATOID ARTHRITIS
     Dosage: THE PATIENT RECEIVED OF MOST RECENT DOSES OF RITUXIMAB SUBSEQUENTLY ON 29/MAY/2013, 09/JAN/2014, 22/
     Route: 042
     Dates: start: 20130515
  2. METHYLPREDNISOLONE. [Concomitant]
     Active Substance: METHYLPREDNISOLONE
     Route: 042
     Dates: start: 20130515
  3. ACETAMINOPHEN. [Concomitant]
     Active Substance: ACETAMINOPHEN
     Route: 048
     Dates: start: 20130515
  4. METHOTREXATE. [Concomitant]
     Active Substance: METHOTREXATE
  5. PREDNISONE. [Concomitant]
     Active Substance: PREDNISONE
  6. PLAQUENIL [Concomitant]
     Active Substance: HYDROXYCHLOROQUINE SULFATE
  7. FOLIC ACID. [Concomitant]
     Active Substance: FOLIC ACID
  8. DIPHENHYDRAMINE. [Concomitant]
     Active Substance: DIPHENHYDRAMINE
     Route: 048
     Dates: start: 20130515

REACTIONS (23)
  - Road traffic accident [Unknown]
  - Weight increased [Unknown]
  - Urinary tract infection [Unknown]
  - Throat irritation [Not Recovered/Not Resolved]
  - Pneumonia [Recovered/Resolved]
  - Musculoskeletal pain [Not Recovered/Not Resolved]
  - Blood pressure fluctuation [Unknown]
  - Oxygen saturation decreased [Unknown]
  - Inflammatory marker increased [Unknown]
  - Oropharyngeal pain [Recovered/Resolved]
  - Blood pressure increased [Unknown]
  - Coccydynia [Unknown]
  - Pain [Not Recovered/Not Resolved]
  - Fall [Unknown]
  - Back pain [Unknown]
  - Vitamin B12 decreased [Unknown]
  - Ligament rupture [Not Recovered/Not Resolved]
  - Neck pain [Unknown]
  - Headache [Recovered/Resolved]
  - Chills [Recovered/Resolved]
  - Nasal discomfort [Not Recovered/Not Resolved]
  - Sinus headache [Unknown]
  - Nasopharyngitis [Recovering/Resolving]

NARRATIVE: CASE EVENT DATE: 20131205
